FAERS Safety Report 12162383 (Version 2)
Quarter: 2016Q2

REPORT INFORMATION
  Report Type: Spontaneous
  Country: IT (occurrence: IT)
  Receive Date: 20160309
  Receipt Date: 20160404
  Transmission Date: 20160815
  Serious: Yes (Hospitalization)
  Sender: FDA-Public Use
  Company Number: IT-AUROBINDO-AUR-APL-2016-02637

PATIENT
  Age: 51 Year
  Sex: Female

DRUGS (2)
  1. DEPAKIN CHRONO [Suspect]
     Active Substance: VALPROIC ACID
     Indication: BIPOLAR DISORDER
     Dosage: 14 DF, UNK
     Route: 048
     Dates: start: 20160115, end: 20160115
  2. OLANZAPINE. [Suspect]
     Active Substance: OLANZAPINE
     Indication: PSYCHOTIC DISORDER
     Dosage: 4 DF, UNK
     Route: 048
     Dates: start: 20160115, end: 20160215

REACTIONS (3)
  - Agitation [Unknown]
  - Dysphoria [Unknown]
  - Overdose [Unknown]

NARRATIVE: CASE EVENT DATE: 20160115
